FAERS Safety Report 13840375 (Version 4)
Quarter: 2017Q4

REPORT INFORMATION
  Report Type: Spontaneous
  Country: US (occurrence: US)
  Receive Date: 20170807
  Receipt Date: 20171122
  Transmission Date: 20180320
  Serious: No
  Sender: FDA-Public Use
  Company Number: US-CELGENEUS-USA-20170708753

PATIENT
  Age: 66 Year
  Sex: Female

DRUGS (5)
  1. OTEZLA [Suspect]
     Active Substance: APREMILAST
     Indication: PSORIASIS
     Dosage: 60 MILLIGRAM
     Route: 048
     Dates: start: 201702
  2. CLARINEX [Concomitant]
     Active Substance: DESLORATADINE
     Indication: RHINITIS ALLERGIC
     Route: 065
  3. DESLORATADINE. [Concomitant]
     Active Substance: DESLORATADINE
     Indication: PRODUCT USED FOR UNKNOWN INDICATION
     Route: 065
  4. OTEZLA [Suspect]
     Active Substance: APREMILAST
     Indication: PSORIATIC ARTHROPATHY
     Dosage: STARTING DOSE
     Route: 048
     Dates: start: 20170124
  5. BENAZEPRIL [Concomitant]
     Active Substance: BENAZEPRIL HYDROCHLORIDE
     Indication: HYPERTENSION
     Route: 065

REACTIONS (1)
  - Dry mouth [Unknown]

NARRATIVE: CASE EVENT DATE: 201702
